FAERS Safety Report 20838226 (Version 1)
Quarter: 2022Q2

REPORT INFORMATION
  Report Type: Spontaneous
  Country: US (occurrence: US)
  Receive Date: 20220517
  Receipt Date: 20220517
  Transmission Date: 20220721
  Serious: No
  Sender: FDA-Public Use
  Company Number: US-ALLERGAN-2210793US

PATIENT
  Sex: Female

DRUGS (6)
  1. KYBELLA [Suspect]
     Active Substance: DEOXYCHOLIC ACID
     Indication: Fat tissue increased
     Dosage: 4 ML, SINGLE 2 VIALS - 5X4 COLUMNS/ROWS ACROSS THE CHIN=20
     Dates: start: 20211117, end: 20211117
  2. KYBELLA [Suspect]
     Active Substance: DEOXYCHOLIC ACID
     Dosage: 4 ML, SINGLE 2 VIALS - 5X4 COLUMNS/ROWS ACROSS THE CHIN=20
     Dates: start: 20211008, end: 20211008
  3. XIIDRA [Concomitant]
     Active Substance: LIFITEGRAST
     Indication: Dry eye
  4. UNKNOWN ALLERGY EYE DROP [Concomitant]
     Indication: Hypersensitivity
  5. UNKNOWN SYSTEMIC ALLERGY PILL [Concomitant]
     Indication: Hypersensitivity
  6. UNKNOWN NEUROTOXIN [Concomitant]
     Indication: Product used for unknown indication

REACTIONS (1)
  - Drug ineffective [Unknown]
